FAERS Safety Report 18436714 (Version 1)
Quarter: 2020Q4

REPORT INFORMATION
  Report Type: Spontaneous
  Country: US (occurrence: US)
  Receive Date: 20201028
  Receipt Date: 20201028
  Transmission Date: 20210114
  Serious: No
  Sender: FDA-Public Use
  Company Number: US-TEVA-2020-US-1842687

PATIENT
  Age: 60 Year
  Sex: Female
  Weight: 56.7 kg

DRUGS (6)
  1. PREMARIN [Suspect]
     Active Substance: ESTROGENS, CONJUGATED
     Indication: MENOPAUSE
     Dosage: .625 MILLIGRAM DAILY;
     Route: 048
  2. ESCITALOPRAM [Suspect]
     Active Substance: ESCITALOPRAM OXALATE
     Indication: DEPRESSION
     Route: 065
     Dates: start: 202005
  3. TOPAMAX [Suspect]
     Active Substance: TOPIRAMATE
     Indication: MIGRAINE
     Dosage: 50 MILLIGRAM DAILY;
     Route: 048
     Dates: start: 20200314
  4. TRAMADOL. [Concomitant]
     Active Substance: TRAMADOL
     Indication: BONE DISORDER
     Dosage: 50MG EVERY 6 HOURS AS NEEDED MODERATE TO SEVERE?PAIN
  5. RIZATRIPTAN. [Concomitant]
     Active Substance: RIZATRIPTAN
     Indication: MIGRAINE
     Dosage: 10MG BY MOUTH AT ONSET OF MIGRAINE
     Route: 048
     Dates: start: 20200314
  6. IMITREX [Concomitant]
     Active Substance: SUMATRIPTAN SUCCINATE
     Indication: MIGRAINE
     Dosage: AS NEEDED

REACTIONS (4)
  - Vomiting [Unknown]
  - Withdrawal syndrome [Unknown]
  - Dehydration [Unknown]
  - Nausea [Unknown]

NARRATIVE: CASE EVENT DATE: 202010
